FAERS Safety Report 4974933-1 (Version None)
Quarter: 2006Q2

REPORT INFORMATION
  Report Type: 
  Country: None (occurrence: None)
  Receive Date: 20060418
  Receipt Date: 20060411
  Transmission Date: 20061013
  Serious: Yes (Hospitalization)
  Sender: FDA-Public Use
  Company Number: GB-RB-3112-2006

PATIENT
  Sex: Male

DRUGS (3)
  1. BUPRENORPHINE HCL [Suspect]
     Indication: DRUG USE FOR UNKNOWN INDICATION
     Dosage: DOSAGE UNKNOWN
     Route: 065
     Dates: end: 20060101
  2. BUPRENORPHINE HCL [Suspect]
     Route: 065
     Dates: start: 20060101
  3. ALCOHOL [Suspect]
     Indication: DRUG USE FOR UNKNOWN INDICATION
     Dosage: ONE BOTTLE
     Route: 048
     Dates: start: 20060101, end: 20060101

REACTIONS (1)
  - INTENTIONAL OVERDOSE [None]
